FAERS Safety Report 8899488 (Version 4)
Quarter: 2012Q4

REPORT INFORMATION
  Report Type: 
  Country: CN (occurrence: CN)
  Receive Date: 20121109
  Receipt Date: 20121119
  Transmission Date: 20130627
  Serious: Yes (Death, Other)
  Sender: FDA-Public Use
  Company Number: CN-ABBOTT-12P-035-1005239-00

PATIENT
  Age: 38 Year
  Sex: Male
  Weight: 90 kg

DRUGS (8)
  1. SEVOFRANE [Suspect]
     Indication: GENERAL ANAESTHESIA
     Dosage: 4.0% in a mixture of O2 (2L/min)
     Route: 055
     Dates: start: 20121030, end: 20121030
  2. SEVOFRANE [Suspect]
     Dosage: 3% adjusted in a mixture of O2 (2L/min)
     Route: 055
     Dates: start: 20121030, end: 20121030
  3. SEVOFRANE [Suspect]
     Dosage: Adjusted then stopped
     Route: 055
     Dates: start: 20121030, end: 20121030
  4. REMIFENTANIL [Concomitant]
     Indication: GENERAL ANAESTHESIA
     Dosage: 3.33 ug/kg/h
     Route: 042
     Dates: start: 20121030, end: 20121030
  5. VECURONIUM [Concomitant]
     Indication: HYPOTONIA
     Route: 042
     Dates: start: 20121030, end: 20121030
  6. PENEHYCLIDINE [Concomitant]
     Indication: ANAESTHESIA
     Route: 042
     Dates: start: 20121030, end: 20121030
  7. FENTANYL [Concomitant]
     Indication: ANAESTHESIA
     Route: 042
     Dates: start: 20121030, end: 20121030
  8. ETOMIDATE [Concomitant]
     Indication: ANAESTHESIA
     Route: 042
     Dates: start: 20121030, end: 20121030

REACTIONS (2)
  - Hyperthermia malignant [Fatal]
  - Blood pressure decreased [Fatal]
